FAERS Safety Report 4394475-4 (Version None)
Quarter: 2004Q3

REPORT INFORMATION
  Report Type: 
  Country: None (occurrence: None)
  Receive Date: 20040712
  Receipt Date: 20040701
  Transmission Date: 20050211
  Serious: Yes (Death, Hospitalization)
  Sender: FDA-Public Use
  Company Number: AU-AMGEN-US082032

PATIENT
  Age: 47 Year
  Sex: Female
  Weight: 48 kg

DRUGS (8)
  1. NEULASTA [Suspect]
     Indication: CHEMOTHERAPY
     Route: 058
     Dates: start: 20040615, end: 20040615
  2. CYTARABINE [Concomitant]
     Dates: start: 20040610, end: 20040614
  3. FLUDARABINE PHOSPHATE [Concomitant]
     Dates: start: 20040610, end: 20040614
  4. SLOW-K [Concomitant]
     Dates: start: 20040607
  5. ALLOPURINOL [Concomitant]
     Dates: start: 20040607
  6. METOCLOPRAMIDE [Concomitant]
     Dates: start: 20040607
  7. FLUCONAZOLE [Concomitant]
     Dates: start: 20040607
  8. TRANEXAMIC ACID [Concomitant]
     Dates: start: 20040615

REACTIONS (4)
  - DRUG INEFFECTIVE [None]
  - LEUKOPENIA [None]
  - NEUTROPENIC SEPSIS [None]
  - STAPHYLOCOCCAL INFECTION [None]
